FAERS Safety Report 4463323-6 (Version None)
Quarter: 2004Q3

REPORT INFORMATION
  Report Type: 
  Country: None (occurrence: None)
  Receive Date: 20040930
  Receipt Date: 20040923
  Transmission Date: 20050211
  Serious: Yes (Hospitalization)
  Sender: FDA-Public Use
  Company Number: US-ROCHE-381462

PATIENT
  Age: 37 Year
  Sex: Female

DRUGS (7)
  1. FUZEON [Suspect]
     Indication: HIV INFECTION
     Route: 058
     Dates: start: 20031215
  2. ZERIT [Concomitant]
     Indication: HIV INFECTION
     Route: 048
  3. KALETRA [Concomitant]
     Indication: HIV INFECTION
     Route: 048
  4. SMZ-TMP [Concomitant]
     Indication: HIV INFECTION
     Route: 048
  5. LORAZEPAM [Concomitant]
     Indication: HIV INFECTION
     Route: 048
  6. DILANTIN [Concomitant]
     Indication: EPILEPSY
     Route: 048
     Dates: end: 20040915
  7. NEURONTIN [Concomitant]
     Indication: EPILEPSY
     Route: 048
     Dates: end: 20040915

REACTIONS (2)
  - CONVULSION [None]
  - INJECTION SITE OEDEMA [None]
